FAERS Safety Report 6682268-4 (Version None)
Quarter: 2010Q2

REPORT INFORMATION
  Report Type: 
  Country: None (occurrence: None)
  Receive Date: 20100415
  Receipt Date: 20100412
  Transmission Date: 20101027
  Serious: Yes (Death, Other)
  Sender: FDA-Public Use
  Company Number: US-ASTRAZENECA-2009SE15058

PATIENT
  Age: 19777 Day
  Sex: Male

DRUGS (3)
  1. SEROQUEL [Suspect]
     Dosage: 100 MG, 1 AM AND 2 HS
     Route: 048
     Dates: start: 20070823
  2. CELEXA [Concomitant]
     Dates: start: 20070823
  3. BUSPAR [Concomitant]
     Dates: start: 20070823

REACTIONS (3)
  - CARDIOGENIC SHOCK [None]
  - DIABETES MELLITUS [None]
  - MYOCARDIAL INFARCTION [None]
